FAERS Safety Report 23289137 (Version 1)
Quarter: 2023Q4

REPORT INFORMATION
  Report Type: Spontaneous
  Country: US (occurrence: US)
  Receive Date: 20231212
  Receipt Date: 20231212
  Transmission Date: 20240109
  Serious: Yes (Hospitalization, Other)
  Sender: FDA-Public Use
  Company Number: US-BRISTOL-MYERS SQUIBB COMPANY-2023-179679

PATIENT
  Age: 80 Year
  Sex: Female
  Weight: 50 kg

DRUGS (5)
  1. OPDIVO [Suspect]
     Active Substance: NIVOLUMAB
     Indication: Malignant melanoma of sites other than skin
     Dosage: DOSE : UNKNOWN (NOT PROVIDED);     FREQ : UNKNOWN
     Dates: start: 20230822
  2. YERVOY [Suspect]
     Active Substance: IPILIMUMAB
     Indication: Malignant melanoma of sites other than skin
     Dates: start: 20230822
  3. PEPCID [Concomitant]
     Active Substance: FAMOTIDINE
     Indication: Malignant melanoma of sites other than skin
     Dates: start: 20230822
  4. VITAMINS NOS [Concomitant]
     Active Substance: VITAMINS
     Indication: Malignant melanoma of sites other than skin
     Dates: start: 20230822
  5. VITAMIN C [Concomitant]
     Active Substance: ASCORBIC ACID
     Indication: Malignant melanoma of sites other than skin
     Dates: start: 20230822

REACTIONS (5)
  - Diarrhoea [Not Recovered/Not Resolved]
  - Gait inability [Unknown]
  - Oedema [Unknown]
  - Intestinal obstruction [Unknown]
  - Weight decreased [Unknown]
